FAERS Safety Report 12594898 (Version 2)
Quarter: 2016Q3

REPORT INFORMATION
  Report Type: Spontaneous
  Country: FR (occurrence: FR)
  Receive Date: 20160726
  Receipt Date: 20160801
  Transmission Date: 20161109
  Serious: Yes (Hospitalization, Other)
  Sender: FDA-Public Use
  Company Number: FR-PFIZER INC-2016355838

PATIENT
  Age: 56 Year
  Sex: Female

DRUGS (4)
  1. XEPLION [Suspect]
     Active Substance: PALIPERIDONE PALMITATE
     Indication: PERSONALITY DISORDER
     Dosage: 75 MG, MONTHLY
     Route: 030
     Dates: start: 201402
  2. XEPLION [Suspect]
     Active Substance: PALIPERIDONE PALMITATE
     Indication: PSYCHOTIC DISORDER
  3. ZOLOFT [Suspect]
     Active Substance: SERTRALINE HYDROCHLORIDE
     Indication: PERSONALITY DISORDER
     Dosage: 50 MG, DAILY
     Route: 048
     Dates: start: 201407
  4. CORDARONE [Suspect]
     Active Substance: AMIODARONE HYDROCHLORIDE
     Indication: ARRHYTHMIA
     Dosage: UNK
     Route: 048
     Dates: end: 201409

REACTIONS (4)
  - Hyperthyroidism [Recovered/Resolved]
  - Thyroiditis [Unknown]
  - Thyroid cyst [Unknown]
  - Iodine overload [Unknown]

NARRATIVE: CASE EVENT DATE: 20151230
